FAERS Safety Report 5750866-8 (Version None)
Quarter: 2008Q2

REPORT INFORMATION
  Report Type: 
  Country: None (occurrence: None)
  Receive Date: 20080528
  Receipt Date: 20080514
  Transmission Date: 20081010
  Serious: Yes (Hospitalization, Other)
  Sender: FDA-Public Use
  Company Number: US-ELI_LILLY_AND_COMPANY-US200805002932

PATIENT
  Age: 26 Year
  Sex: Male

DRUGS (2)
  1. OLANZAPINE [Suspect]
     Dosage: 10 MG, DAILY (1/D)
  2. MARIJUANA [Concomitant]

REACTIONS (8)
  - ACTIVITIES OF DAILY LIVING IMPAIRED [None]
  - DEPRESSION [None]
  - DRUG SCREEN POSITIVE [None]
  - MICTURITION URGENCY [None]
  - OBSESSIVE THOUGHTS [None]
  - SLEEP DISORDER [None]
  - URINARY HESITATION [None]
  - URINARY RETENTION [None]
